FAERS Safety Report 9529099 (Version 2)
Quarter: 2013Q3

REPORT INFORMATION
  Report Type: Not Available
  Country: US (occurrence: US)
  Receive Date: 20130916
  Receipt Date: 20130916
  Transmission Date: 20140515
  Serious: No
  Sender: FDA-Public Use
  Company Number: US-LUNDBECK-DKLU1086184

PATIENT
  Sex: Male

DRUGS (4)
  1. ONFI [Suspect]
     Indication: EPILEPSY
     Route: 048
     Dates: start: 20120906, end: 20121108
  2. ONFI [Suspect]
     Dates: start: 20121108
  3. ONFI [Suspect]
     Dates: start: 20121108
  4. DILANTIN [Concomitant]
     Indication: PRODUCT USED FOR UNKNOWN INDICATION

REACTIONS (3)
  - Feeling drunk [Not Recovered/Not Resolved]
  - Sedation [Not Recovered/Not Resolved]
  - Aggression [Not Recovered/Not Resolved]
